FAERS Safety Report 15225972 (Version 1)
Quarter: 2018Q3

REPORT INFORMATION
  Report Type: Spontaneous
  Country: US (occurrence: US)
  Receive Date: 20180801
  Receipt Date: 20180801
  Transmission Date: 20181010
  Serious: Yes (Hospitalization, Other)
  Sender: FDA-Public Use
  Company Number: US-ZYDUS-020999

PATIENT
  Age: 50 Year
  Sex: Male

DRUGS (7)
  1. ETRAVIRINE [Concomitant]
     Active Substance: ETRAVIRINE
     Indication: ACQUIRED IMMUNODEFICIENCY SYNDROME
     Route: 065
  2. DARUNAVIR [Concomitant]
     Active Substance: DARUNAVIR
     Indication: ACQUIRED IMMUNODEFICIENCY SYNDROME
     Route: 065
  3. TENOFOVIR/TENOFOVIR DISOPROXIL FUMARATE [Concomitant]
     Indication: ACQUIRED IMMUNODEFICIENCY SYNDROME
     Route: 065
  4. FLUCONAZOLE. [Suspect]
     Active Substance: FLUCONAZOLE
     Indication: ORAL CANDIDIASIS
     Route: 065
  5. RITONAVIR. [Concomitant]
     Active Substance: RITONAVIR
     Indication: ACQUIRED IMMUNODEFICIENCY SYNDROME
     Route: 065
  6. FLUCONAZOLE. [Suspect]
     Active Substance: FLUCONAZOLE
     Indication: ORAL CANDIDIASIS
     Route: 065
  7. CEFAZOLIN [Concomitant]
     Active Substance: CEFAZOLIN
     Indication: SEPTIC ARTHRITIS STREPTOCOCCAL
     Route: 065

REACTIONS (2)
  - Adrenal suppression [Unknown]
  - Blood sodium decreased [Unknown]
